FAERS Safety Report 17346911 (Version 2)
Quarter: 2020Q1

REPORT INFORMATION
  Report Type: Spontaneous
  Country: AU (occurrence: AU)
  Receive Date: 20200130
  Receipt Date: 20200214
  Transmission Date: 20200409
  Serious: Yes (Other)
  Sender: FDA-Public Use
  Company Number: AU-ROCHE-2536324

PATIENT
  Sex: Female
  Weight: 52.8 kg

DRUGS (8)
  1. VINCRISTINE [Suspect]
     Active Substance: VINCRISTINE
     Indication: DIFFUSE LARGE B-CELL LYMPHOMA
     Dosage: X 6
     Route: 065
     Dates: start: 20190619, end: 20191010
  2. CISPLATIN. [Suspect]
     Active Substance: CISPLATIN
     Indication: DIFFUSE LARGE B-CELL LYMPHOMA REFRACTORY
     Dosage: 3 CYCLES
     Route: 065
     Dates: start: 20191107, end: 20200101
  3. GEMCITABINE. [Suspect]
     Active Substance: GEMCITABINE
     Indication: DIFFUSE LARGE B-CELL LYMPHOMA REFRACTORY
     Dosage: 3 CYCLES
     Route: 065
     Dates: start: 20191107, end: 20200101
  4. RITUXIMAB. [Suspect]
     Active Substance: RITUXIMAB
     Indication: DIFFUSE LARGE B-CELL LYMPHOMA
     Dosage: X 6
     Route: 065
     Dates: start: 20190619, end: 20191010
  5. CYCLOPHOSPHAMIDE. [Suspect]
     Active Substance: CYCLOPHOSPHAMIDE
     Indication: DIFFUSE LARGE B-CELL LYMPHOMA
     Dosage: X 6
     Route: 065
     Dates: start: 20190619, end: 20191010
  6. PREDNISOLONE. [Suspect]
     Active Substance: PREDNISOLONE
     Indication: DIFFUSE LARGE B-CELL LYMPHOMA
     Dosage: X 6
     Route: 065
     Dates: start: 20190619, end: 20191010
  7. DOXORUBICIN [Suspect]
     Active Substance: DOXORUBICIN
     Indication: DIFFUSE LARGE B-CELL LYMPHOMA
     Dosage: X 6
     Route: 065
     Dates: start: 20190619, end: 20191010
  8. DEXAMETHASONE. [Suspect]
     Active Substance: DEXAMETHASONE
     Indication: DIFFUSE LARGE B-CELL LYMPHOMA REFRACTORY
     Dosage: 3 CYCLES
     Route: 065
     Dates: start: 20191107, end: 20200101

REACTIONS (2)
  - Diffuse large B-cell lymphoma refractory [Unknown]
  - Hiatus hernia [Unknown]
